FAERS Safety Report 22141428 (Version 1)
Quarter: 2023Q1

REPORT INFORMATION
  Report Type: Spontaneous
  Country: US (occurrence: US)
  Receive Date: 20230327
  Receipt Date: 20230327
  Transmission Date: 20230418
  Serious: Yes (Other)
  Sender: FDA-Public Use
  Company Number: US-SA-SAC20230327000089

PATIENT
  Sex: Female

DRUGS (3)
  1. AMBIEN [Suspect]
     Active Substance: ZOLPIDEM TARTRATE
     Dosage: UNK
  2. LUNESTA [Concomitant]
     Active Substance: ESZOPICLONE
     Dosage: UNK
  3. MELATONIN [Concomitant]
     Active Substance: MELATONIN
     Dosage: UNK

REACTIONS (3)
  - Malignant melanoma [Unknown]
  - Hallucination, visual [Unknown]
  - Sleep disorder [Unknown]
